FAERS Safety Report 10516627 (Version 1)
Quarter: 2014Q4

REPORT INFORMATION
  Report Type: Spontaneous
  Country: US (occurrence: US)
  Receive Date: 20141014
  Receipt Date: 20141014
  Transmission Date: 20150528
  Serious: No
  Sender: FDA-Public Use
  Company Number: US-TARO-2014P1004124

PATIENT
  Age: 6 Year
  Sex: Female
  Weight: 19.5 kg

DRUGS (1)
  1. LORATADINE SYRUP (LORATADINE ORAL SOLUTION USP) 5MG/5ML [Suspect]
     Active Substance: LORATADINE
     Indication: SINUS DISORDER
     Route: 048
     Dates: start: 20140423, end: 20140504

REACTIONS (2)
  - Pollakiuria [Recovered/Resolved]
  - Off label use [Recovered/Resolved]

NARRATIVE: CASE EVENT DATE: 20140423
